FAERS Safety Report 10042239 (Version 1)
Quarter: 2014Q1

REPORT INFORMATION
  Report Type: Spontaneous
  Country: CN (occurrence: CN)
  Receive Date: 20140327
  Receipt Date: 20140327
  Transmission Date: 20141002
  Serious: Yes (Other)
  Sender: FDA-Public Use
  Company Number: CN-GLAXOSMITHKLINE-B0979946A

PATIENT
  Age: 30 Year
  Sex: Female

DRUGS (2)
  1. VIREAD [Suspect]
     Indication: HEPATITIS B
     Dosage: 1IUAX PER DAY
     Route: 048
     Dates: start: 20140218
  2. HEPTODIN [Suspect]
     Indication: HEPATITIS B
     Dosage: 1IUAX PER DAY
     Route: 048

REACTIONS (5)
  - Nephrolithiasis [Unknown]
  - Renal pain [Unknown]
  - Urine odour abnormal [Unknown]
  - Discomfort [Unknown]
  - Hepatitis B DNA increased [Not Recovered/Not Resolved]
